FAERS Safety Report 6529694-1 (Version None)
Quarter: 2010Q1

REPORT INFORMATION
  Report Type: 
  Country: None (occurrence: None)
  Receive Date: 20100107
  Receipt Date: 20091229
  Transmission Date: 20100710
  Serious: No
  Sender: FDA-Public Use
  Company Number: NZ-ELI_LILLY_AND_COMPANY-NZ200912006230

PATIENT
  Sex: Male

DRUGS (7)
  1. ZYPREXA [Suspect]
     Dosage: 2.5 MG, DAILY (1/D)
     Route: 048
  2. ZYPREXA [Suspect]
     Dosage: 5 MG, DAILY (1/D)
     Route: 048
  3. ZYPREXA [Suspect]
     Dosage: 7.5 MG, DAILY (1/D)
     Route: 048
  4. ZYPREXA [Suspect]
     Dosage: 10 MG, DAILY (1/D)
     Route: 048
  5. ZYPREXA [Suspect]
     Dosage: 20 MG, UNK
  6. ZYPREXA [Suspect]
     Dosage: 40 MG, UNK
  7. EPILIM [Concomitant]

REACTIONS (4)
  - EPISTAXIS [None]
  - FLATULENCE [None]
  - OVERDOSE [None]
  - WEIGHT INCREASED [None]
